FAERS Safety Report 14881107 (Version 6)
Quarter: 2018Q3

REPORT INFORMATION
  Report Type: Spontaneous
  Country: US (occurrence: US)
  Receive Date: 20180511
  Receipt Date: 20180803
  Transmission Date: 20181010
  Serious: No
  Sender: FDA-Public Use
  Company Number: US-PFIZER INC-2018190050

PATIENT
  Age: 61 Year
  Sex: Female

DRUGS (3)
  1. IBRANCE [Suspect]
     Active Substance: PALBOCICLIB
     Dosage: 100 MG, ONCE DAILY
     Route: 048
     Dates: start: 2018, end: 2018
  2. IBRANCE [Suspect]
     Active Substance: PALBOCICLIB
     Dosage: UNK
     Route: 048
     Dates: start: 2018
  3. IBRANCE [Suspect]
     Active Substance: PALBOCICLIB
     Indication: NEOPLASM MALIGNANT
     Dosage: 125 MG, UNK
     Route: 048
     Dates: start: 2018, end: 2018

REACTIONS (14)
  - Lip discolouration [Unknown]
  - Blood pressure decreased [Unknown]
  - Cheilitis [Unknown]
  - Eye disorder [Unknown]
  - Auditory disorder [Unknown]
  - Intentional product misuse [Unknown]
  - Alopecia [Unknown]
  - Feeling abnormal [Unknown]
  - Lip pain [Unknown]
  - Product storage error [Unknown]
  - Nausea [Unknown]
  - Dysgeusia [Recovering/Resolving]
  - Incorrect dose administered [Unknown]
  - Oral discomfort [Unknown]

NARRATIVE: CASE EVENT DATE: 2018
